FAERS Safety Report 16580030 (Version 1)
Quarter: 2019Q3

REPORT INFORMATION
  Report Type: Spontaneous
  Country: DE (occurrence: DE)
  Receive Date: 20190716
  Receipt Date: 20190716
  Transmission Date: 20191004
  Serious: Yes (Hospitalization)
  Sender: FDA-Public Use
  Company Number: DE-TEVA-2019-DE-1077503

PATIENT
  Age: 80 Year
  Sex: Male
  Weight: 85 kg

DRUGS (11)
  1. RAMIPRIL. [Concomitant]
     Active Substance: RAMIPRIL
     Dosage: 5 MG, 1-0-0-0, TABLET
     Route: 048
  2. DOXORUBICIN [Suspect]
     Active Substance: DOXORUBICIN
     Dosage: NK, BY SCHEME, LAST ON 11.12.2017, SOLUTION FOR INJECTION/INFUSION
     Route: 042
  3. METOPROLOL. [Concomitant]
     Active Substance: METOPROLOL
     Dosage: 47.5 MG, 1-0-0-0, TABLET
     Route: 048
  4. PREDNISOLONE. [Suspect]
     Active Substance: PREDNISOLONE
     Dosage: NK NK, BY SCHEME, LAST ON 11.12.2017, SOLUTION FOR INJECTION/INFUSION
     Route: 042
  5. RITUXIMAB. [Suspect]
     Active Substance: RITUXIMAB
     Dosage: NK NK, BY SCHEME, LAST ON 11.12.2017, SOLUTION FOR INJECTION/INFUSION
     Route: 042
  6. PREDNISOLON [Concomitant]
     Active Substance: PREDNISOLONE
     Dosage: 100 MG, 1-0-0-0, TABLET
     Route: 048
  7. LEVOTHYROXIN-NATRIUM [Concomitant]
     Active Substance: LEVOTHYROXINE SODIUM
     Dosage: 100 MICROGRAM, 1-0-0-0, TABLET
     Route: 048
  8. VINCRISTINE [Suspect]
     Active Substance: VINCRISTINE
     Dosage: NK NK, BY SCHEME, LAST ON 11.12.2017, SOLUTION FOR INJECTION/INFUSION
  9. CYCLOPHOSPHAMID [Suspect]
     Active Substance: CYCLOPHOSPHAMIDE
     Dosage: NK NK, BY SCHEME, LAST ON 11.12.2017, SOLUTION FOR INJECTION/INFUSION
  10. ENOXAPARIN [Concomitant]
     Active Substance: ENOXAPARIN
     Dosage: 0.6 ML, 0-0-1-0, SOLUTION FOR INJECTION/INFUSION
     Route: 058
  11. NEULASTA [Concomitant]
     Active Substance: PEGFILGRASTIM
     Dosage: 6 MG, SINGLE-TIME, SOLUTION FOR INJECTION/INFUSION
     Route: 058

REACTIONS (6)
  - Syncope [Unknown]
  - Fall [Unknown]
  - Oedema peripheral [Unknown]
  - Dizziness [Unknown]
  - Dyspnoea [Unknown]
  - Cough [Unknown]
